FAERS Safety Report 8930430 (Version 1)
Quarter: 2012Q4

REPORT INFORMATION
  Report Type: 
  Country: HU (occurrence: HU)
  Receive Date: 20121128
  Receipt Date: 20121128
  Transmission Date: 20130627
  Serious: Yes (Death, Life-Threatening, Hospitalization)
  Sender: FDA-Public Use
  Company Number: HU-AMGEN-HUNCT2012075796

PATIENT
  Age: 70 Year
  Sex: Female
  Weight: 99 kg

DRUGS (15)
  1. DARBEPOETIN ALFA [Suspect]
     Indication: NEPHROGENIC ANAEMIA
     Route: 058
  2. METHOXY POLYETHYLENE GLYCOL-EPOETIN BETA [Concomitant]
     Indication: NEPHROGENIC ANAEMIA
     Dosage: 90 mug, qmo
     Route: 058
     Dates: start: 20091116, end: 20100115
  3. MICARDIS PLUS [Concomitant]
     Dosage: 80 mg/kg, UNK
     Dates: start: 20100222
  4. TALLITON [Concomitant]
     Dosage: 50 mg, UNK
     Dates: start: 20100222
  5. CERUCAL [Concomitant]
     Dosage: UNK
     Route: 051
     Dates: start: 20100222
  6. LERCATON [Concomitant]
     Dosage: 30 mg, UNK
     Dates: start: 20100222
  7. ADEXOR [Concomitant]
     Dosage: 70 mg, UNK
     Dates: start: 20100222
  8. NITRODERM [Concomitant]
     Dosage: 25 mg, UNK
     Dates: start: 20100222
  9. DOXIUM [Concomitant]
     Dosage: 500 mg, UNK
     Dates: start: 20100222
  10. CONTROLOC [Concomitant]
     Dosage: 40 mg, UNK
     Dates: start: 20100222
  11. CRESTOR [Concomitant]
     Dosage: 20 mg, UNK
     Dates: start: 20100222
  12. ROCEPHIN [Concomitant]
     Dosage: 2 g, UNK
     Dates: start: 20100222
  13. VITAMIN B6 [Concomitant]
     Dosage: UNK
     Route: 051
     Dates: start: 20100222
  14. NOOTROPIL [Concomitant]
     Dosage: 6 g, UNK
     Dates: start: 20100222
  15. INSULIN HUMULIN L [Concomitant]
     Dosage: UNK

REACTIONS (3)
  - Neurological infection [Fatal]
  - Cerebrovascular accident [Fatal]
  - Renal failure chronic [Fatal]
